FAERS Safety Report 17528436 (Version 1)
Quarter: 2020Q1

REPORT INFORMATION
  Report Type: Spontaneous
  Country: IT (occurrence: IT)
  Receive Date: 20200312
  Receipt Date: 20200312
  Transmission Date: 20200409
  Serious: Yes (Death, Other)
  Sender: FDA-Public Use
  Company Number: IT-AUROBINDO-AUR-APL-2020-012174

PATIENT
  Age: 67 Year
  Sex: Male

DRUGS (4)
  1. COLISTIN [Suspect]
     Active Substance: COLISTIN
     Indication: SEPTIC SHOCK
     Dosage: 9 MIL LOADING DOSE
     Route: 065
  2. COLISTIN [Suspect]
     Active Substance: COLISTIN
     Dosage: 4.5 MIL , TWO TIMES A DAY
     Route: 065
  3. VANCOMYCIN HYDROCHLORIDE. [Suspect]
     Active Substance: VANCOMYCIN HYDROCHLORIDE
     Indication: KLEBSIELLA INFECTION
     Dosage: 2 GRAM, ONCE A DAY
     Route: 065
  4. MEROPENEM. [Suspect]
     Active Substance: MEROPENEM
     Indication: KLEBSIELLA INFECTION
     Dosage: 2 GRAM, 3 TIMES A DAY
     Route: 065

REACTIONS (2)
  - Therapy non-responder [Fatal]
  - Acute kidney injury [Fatal]
